FAERS Safety Report 6652397-X (Version None)
Quarter: 2010Q1

REPORT INFORMATION
  Report Type: 
  Country: None (occurrence: None)
  Receive Date: 20100323
  Receipt Date: 20100316
  Transmission Date: 20100710
  Serious: No
  Sender: FDA-Public Use
  Company Number: 008866

PATIENT
  Sex: Male
  Weight: 59 kg

DRUGS (4)
  1. LEVETIRACETAM [Suspect]
     Indication: CONVULSION
     Dosage: (500 MG TID, ROUTE SQ)
     Dates: start: 20100204, end: 20100214
  2. FOLIC ACID [Concomitant]
  3. THIAMINE [Concomitant]
  4. MULTIVITAMIN /01229101/ [Concomitant]

REACTIONS (3)
  - ASTHENIA [None]
  - DRUG INEFFECTIVE [None]
  - PRURITUS GENERALISED [None]
